FAERS Safety Report 17207173 (Version 1)
Quarter: 2019Q4

REPORT INFORMATION
  Report Type: Spontaneous
  Country: US (occurrence: US)
  Receive Date: 20191227
  Receipt Date: 20191227
  Transmission Date: 20200122
  Serious: No
  Sender: FDA-Public Use
  Company Number: US-ASTRAZENECA-2019SF85268

PATIENT
  Sex: Female

DRUGS (14)
  1. FAMOTIDINE. [Concomitant]
     Active Substance: FAMOTIDINE
  2. PUROSEMIDE [Concomitant]
     Dosage: 10.0MG/ML UNKNOWN
  3. OSELTAMIVIR [Concomitant]
     Active Substance: OSELTAMIVIR
     Dosage: 6.0MG/ML UNKNOWN
  4. ALBUTEROL. [Concomitant]
     Active Substance: ALBUTEROL
     Dosage: 1.25MG UNKNOWN
  5. NAFCILLIN [Concomitant]
     Active Substance: NAFCILLIN SODIUM
     Dosage: 1.0G UNKNOWN
  6. PREDNISOLONE. [Concomitant]
     Active Substance: PREDNISOLONE
  7. MULTIVITAMIN DRO/IRON [Concomitant]
  8. POLYETH GLYC [Concomitant]
     Active Substance: POLYETHYLENE GLYCOLS
  9. BUDESONIDE. [Suspect]
     Active Substance: BUDESONIDE
     Dosage: 0.5MG UNKNOWN
     Route: 055
  10. FUROSEMIDE. [Concomitant]
     Active Substance: FUROSEMIDE
     Dosage: 10.0MG/ML UNKNOWN
  11. ENALAPRIL [Concomitant]
     Active Substance: ENALAPRIL
     Dosage: 5.0MG UNKNOWN
  12. CYPROHEPTAD [Concomitant]
  13. SYNAGIS [Suspect]
     Active Substance: PALIVIZUMAB
     Indication: VENTRICULAR SEPTAL DEFECT
     Dosage: 100MG/ML MONTHLY
     Route: 030
     Dates: start: 20181205
  14. GABAPENTIN. [Concomitant]
     Active Substance: GABAPENTIN

REACTIONS (3)
  - Respiratory disorder [Not Recovered/Not Resolved]
  - Cough [Not Recovered/Not Resolved]
  - Pyrexia [Not Recovered/Not Resolved]
